FAERS Safety Report 6374708-5 (Version None)
Quarter: 2009Q3

REPORT INFORMATION
  Report Type: 
  Country: None (occurrence: None)
  Receive Date: 20090924
  Receipt Date: 20090914
  Transmission Date: 20100115
  Serious: Yes (Other)
  Sender: FDA-Public Use
  Company Number: US-PFIZER INC-2009266089

PATIENT

DRUGS (1)
  1. SUTENT [Suspect]
     Dosage: 50 MG, 1X/DAY X 28DAYS Q 42 DAYS
     Dates: start: 20090831

REACTIONS (10)
  - BLOOD PRESSURE INCREASED [None]
  - CONDITION AGGRAVATED [None]
  - DECREASED APPETITE [None]
  - DIARRHOEA [None]
  - INCORRECT DOSE ADMINISTERED [None]
  - JOINT SWELLING [None]
  - LOSS OF CONSCIOUSNESS [None]
  - OEDEMA PERIPHERAL [None]
  - ORAL PAIN [None]
  - WEIGHT DECREASED [None]
